FAERS Safety Report 4814171-6 (Version None)
Quarter: 2005Q4

REPORT INFORMATION
  Report Type: 
  Country: None (occurrence: None)
  Receive Date: 20051028
  Receipt Date: 20050713
  Transmission Date: 20060501
  Serious: Yes (Other)
  Sender: FDA-Public Use
  Company Number: US-GLAXOSMITHKLINE-A0566213A

PATIENT
  Age: 51 Year
  Sex: Female
  Weight: 61.4 kg

DRUGS (5)
  1. ADVAIR DISKUS 100/50 [Suspect]
     Indication: ASTHMA
     Dosage: 1PUFF TWICE PER DAY
     Route: 055
     Dates: start: 20050101, end: 20050702
  2. KLONOPIN [Concomitant]
     Indication: MITRAL VALVE PROLAPSE
     Dosage: .5MG AT NIGHT
     Route: 048
  3. ALBUTEROL [Concomitant]
     Indication: ASTHMA
     Route: 055
     Dates: start: 19970101
  4. ANTIVERT [Concomitant]
     Indication: VERTIGO
     Dosage: 25MG AT NIGHT
     Route: 048
     Dates: start: 19950101
  5. PEPCID AC [Concomitant]
     Route: 048
     Dates: start: 20000101

REACTIONS (6)
  - ANGIONEUROTIC OEDEMA [None]
  - CHEST DISCOMFORT [None]
  - COUGH [None]
  - HYPERSENSITIVITY [None]
  - PHARYNGEAL OEDEMA [None]
  - RASH GENERALISED [None]
